FAERS Safety Report 11318375 (Version 1)
Quarter: 2015Q3

REPORT INFORMATION
  Report Type: Spontaneous
  Country: US (occurrence: US)
  Receive Date: 20150728
  Receipt Date: 20150728
  Transmission Date: 20151125
  Serious: Yes (Other)
  Sender: FDA-Public Use
  Company Number: US-TEVA-582270USA

PATIENT
  Age: 51 Year
  Sex: Female
  Weight: 77.18 kg

DRUGS (5)
  1. COPAXONE [Suspect]
     Active Substance: GLATIRAMER ACETATE
     Indication: RELAPSING-REMITTING MULTIPLE SCLEROSIS
     Dosage: UNKNOWN DOSE STRENGTH
  2. TRAMADOL. [Concomitant]
     Active Substance: TRAMADOL
  3. BACLOFEN. [Concomitant]
     Active Substance: BACLOFEN
     Indication: MUSCLE SPASMS
  4. DIAZEPAM. [Concomitant]
     Active Substance: DIAZEPAM
     Indication: PANIC ATTACK
  5. GABAPENTIN. [Concomitant]
     Active Substance: GABAPENTIN
     Indication: NEURALGIA

REACTIONS (14)
  - Muscle spasms [Unknown]
  - Deformity [Unknown]
  - Hypersensitivity [Unknown]
  - Muscle twitching [Unknown]
  - Wheelchair user [Unknown]
  - Fatigue [Unknown]
  - Multiple sclerosis relapse [Unknown]
  - Abasia [Unknown]
  - Loss of consciousness [Unknown]
  - Dizziness [Unknown]
  - Obesity [Unknown]
  - Paraesthesia [Unknown]
  - Limb deformity [Unknown]
  - Stress [Unknown]

NARRATIVE: CASE EVENT DATE: 201503
